FAERS Safety Report 10047118 (Version 1)
Quarter: 2014Q1

REPORT INFORMATION
  Report Type: Spontaneous
  Country: US (occurrence: US)
  Receive Date: 20140331
  Receipt Date: 20140331
  Transmission Date: 20141002
  Serious: No
  Sender: FDA-Public Use
  Company Number: US-MYLANLABS-2013S1009575

PATIENT
  Age: 51 Year
  Sex: Female
  Weight: 72.58 kg

DRUGS (10)
  1. FENTANYL TRANSDERMAL SYSTEM [Suspect]
     Indication: ABDOMINAL PAIN
     Dosage: Q48H
     Route: 062
     Dates: start: 2006
  2. OXYCODONE HYDROCHLORIDE TABLETS USP [Suspect]
     Indication: ABDOMINAL PAIN
     Dosage: AND PRN
     Route: 048
  3. METFORMIN [Concomitant]
     Indication: DIABETES MELLITUS
  4. RISPERIDONE [Concomitant]
     Indication: POST-TRAUMATIC STRESS DISORDER
  5. CLONAZEPAM [Concomitant]
     Indication: POST-TRAUMATIC STRESS DISORDER
  6. TRAZODONE [Concomitant]
     Indication: INSOMNIA
  7. ESTRADIOL [Concomitant]
     Indication: HORMONE REPLACEMENT THERAPY
  8. LEVOTHYROXINE [Concomitant]
     Indication: THYROID DISORDER
  9. HUMALOG [Concomitant]
     Indication: DIABETES MELLITUS
  10. AMITIZA [Concomitant]
     Indication: ABDOMINAL OPERATION

REACTIONS (4)
  - Drug screen positive [Not Recovered/Not Resolved]
  - Application site vesicles [Recovered/Resolved]
  - Application site pruritus [Recovered/Resolved]
  - Application site burn [Recovered/Resolved]
